FAERS Safety Report 17680247 (Version 1)
Quarter: 2020Q2

REPORT INFORMATION
  Report Type: Spontaneous
  Country: US (occurrence: US)
  Receive Date: 20200416
  Receipt Date: 20200416
  Transmission Date: 20200714
  Serious: No
  Sender: FDA-Public Use
  Company Number: None

PATIENT
  Age: 7 Year
  Sex: Female

DRUGS (1)
  1. METHOTREXATE INJ 25MG/ML 2ML MDV [Suspect]
     Active Substance: METHOTREXATE SODIUM
     Dosage: OTHER
     Route: 058
     Dates: start: 20180201, end: 20191101

REACTIONS (1)
  - Hepatic enzyme increased [None]

NARRATIVE: CASE EVENT DATE: 20190201
